FAERS Safety Report 20940592 (Version 2)
Quarter: 2022Q2

REPORT INFORMATION
  Report Type: Spontaneous
  Country: US (occurrence: US)
  Receive Date: 20220609
  Receipt Date: 20220625
  Transmission Date: 20220721
  Serious: Yes (Other)
  Sender: FDA-Public Use
  Company Number: US-TEVA-2022-US-2043563

PATIENT
  Age: 55 Year
  Sex: Male

DRUGS (3)
  1. DOXORUBICIN [Suspect]
     Active Substance: DOXORUBICIN
     Indication: Paraganglion neoplasm
     Dosage: CYADIC CHEMOTHERAPY
     Route: 065
  2. DACARBAZINE [Suspect]
     Active Substance: DACARBAZINE
     Indication: Paraganglion neoplasm
     Dosage: CYADIC CHEMOTHERAPY
     Route: 065
  3. CYCLOPHOSPHAMIDE [Suspect]
     Active Substance: CYCLOPHOSPHAMIDE
     Indication: Paraganglion neoplasm
     Dosage: CYADIC CHEMOTHERAPY
     Route: 065

REACTIONS (5)
  - Neutropenia [Unknown]
  - Candida infection [Unknown]
  - Drug ineffective [Unknown]
  - Fatigue [Unknown]
  - Mucosal inflammation [Unknown]
